FAERS Safety Report 6126101-8 (Version None)
Quarter: 2009Q1

REPORT INFORMATION
  Report Type: 
  Country: None (occurrence: None)
  Receive Date: 20090320
  Receipt Date: 20090313
  Transmission Date: 20090719
  Serious: Yes (Hospitalization)
  Sender: FDA-Public Use
  Company Number: A0660051A

PATIENT
  Age: 66 Year
  Sex: Female

DRUGS (3)
  1. AVANDIA [Suspect]
     Dosage: 4MG IN THE MORNING
     Route: 048
     Dates: start: 20050101, end: 20070101
  2. AVANDARYL [Suspect]
     Route: 048
     Dates: start: 20050101, end: 20070101
  3. GLIMEPIRIDE [Concomitant]

REACTIONS (2)
  - ADVERSE EVENT [None]
  - CEREBROVASCULAR ACCIDENT [None]
